FAERS Safety Report 10166691 (Version 1)
Quarter: 2014Q2

REPORT INFORMATION
  Report Type: Spontaneous
  Country: GB (occurrence: None)
  Receive Date: 20140508
  Receipt Date: 20140508
  Transmission Date: 20141212
  Serious: Yes (Other)
  Sender: FDA-Public Use
  Company Number: AUR-APL-2014-05375

PATIENT
  Sex: 0

DRUGS (1)
  1. AMLODIPINE (AMLODIPINE) [Suspect]
     Indication: PRODUCT USED FOR UNKNOWN INDICATION
     Dates: start: 20140203, end: 20140302

REACTIONS (3)
  - Blepharitis [None]
  - Paraesthesia oral [None]
  - Paraesthesia [None]
